FAERS Safety Report 16969421 (Version 1)
Quarter: 2019Q4

REPORT INFORMATION
  Report Type: Spontaneous
  Country: DE (occurrence: DE)
  Receive Date: 20191029
  Receipt Date: 20191029
  Transmission Date: 20200122
  Serious: Yes (Other)
  Sender: FDA-Public Use
  Company Number: DE-MYLANLABS-2019M1101359

PATIENT
  Age: 58 Year
  Sex: Male
  Weight: 92 kg

DRUGS (1)
  1. LEVOFLOXACIN. [Suspect]
     Active Substance: LEVOFLOXACIN
     Indication: PRODUCT USED FOR UNKNOWN INDICATION
     Dosage: UNK, 30 TABLETTEN
     Route: 048
     Dates: start: 2017, end: 2017

REACTIONS (3)
  - General physical health deterioration [Unknown]
  - Skin burning sensation [Unknown]
  - Retinal detachment [Not Recovered/Not Resolved]

NARRATIVE: CASE EVENT DATE: 201806
